FAERS Safety Report 14096142 (Version 3)
Quarter: 2017Q4

REPORT INFORMATION
  Report Type: Spontaneous
  Country: JP (occurrence: JP)
  Receive Date: 20171017
  Receipt Date: 20171026
  Transmission Date: 20180321
  Serious: Yes (Life-Threatening, Other)
  Sender: FDA-Public Use
  Company Number: JP-009507513-1710JPN006635

PATIENT
  Age: 67 Year
  Sex: Female

DRUGS (9)
  1. ELTROMBOPAG OLAMINE [Concomitant]
     Active Substance: ELTROMBOPAG OLAMINE
     Dosage: ESCALATED WEEKLY BY 12.5 MG PER DAY UP TO 50 MG PER DAY
  2. DEXAMETHASONE. [Suspect]
     Active Substance: DEXAMETHASONE
     Indication: B-CELL LYMPHOMA
     Dosage: HIGH-DOSE
     Route: 048
     Dates: start: 20160129
  3. GLOBULIN, IMMUNE [Concomitant]
     Active Substance: HUMAN IMMUNOGLOBULIN G
     Dosage: HIGH-DOSE
  4. PREDNISOLONE. [Concomitant]
     Active Substance: PREDNISOLONE
     Indication: BICYTOPENIA
     Dosage: 30 MG, UNK
     Dates: start: 20160115
  5. BENDAMUSTINE [Concomitant]
     Active Substance: BENDAMUSTINE
     Indication: B-CELL LYMPHOMA
     Dosage: 90 MG/M2, UNK
     Route: 041
  6. GLOBULIN, IMMUNE [Concomitant]
     Active Substance: HUMAN IMMUNOGLOBULIN G
     Indication: B-CELL LYMPHOMA
     Dosage: HIGH-DOSE
     Dates: start: 20160129
  7. RITUXIMAB. [Concomitant]
     Active Substance: RITUXIMAB
     Indication: B-CELL LYMPHOMA
     Dosage: HIGH-DOSE
     Route: 041
     Dates: start: 20160205
  8. RITUXIMAB. [Concomitant]
     Active Substance: RITUXIMAB
     Dosage: HIGH-DOSE
  9. ELTROMBOPAG OLAMINE [Concomitant]
     Active Substance: ELTROMBOPAG OLAMINE
     Indication: BICYTOPENIA
     Dosage: ESCALATED WEEKLY BY 12.5 MG PER DAY UP TO 50 MG PER DAY
     Route: 048
     Dates: start: 20160216, end: 20160223

REACTIONS (3)
  - Pancytopenia [Recovering/Resolving]
  - Pneumonia [Recovering/Resolving]
  - Drug ineffective [Unknown]

NARRATIVE: CASE EVENT DATE: 2016
